FAERS Safety Report 7575519-5 (Version None)
Quarter: 2011Q2

REPORT INFORMATION
  Report Type: 
  Country: None (occurrence: None)
  Receive Date: 20110627
  Receipt Date: 20110617
  Transmission Date: 20111010
  Serious: Yes (Hospitalization, Other)
  Sender: FDA-Public Use
  Company Number: PHEH2009US04183

PATIENT
  Sex: Female

DRUGS (50)
  1. ZOMETA [Suspect]
  2. SYNTHROID [Concomitant]
  3. HYDROCODONE [Concomitant]
  4. STEROIDS NOS [Concomitant]
  5. LIDOCAINE [Concomitant]
  6. DEPO-MEDROL [Concomitant]
  7. TRICOR [Concomitant]
  8. LASIX [Concomitant]
  9. MYCOSTATIN [Concomitant]
     Dosage: UNK
     Route: 061
  10. ARIMIDEX [Concomitant]
  11. FOSAMAX [Suspect]
     Indication: OSTEITIS DEFORMANS
  12. PHENERGAN [Concomitant]
  13. PERCOCET [Concomitant]
  14. REGLAN [Concomitant]
  15. CEFAZOLIN [Concomitant]
  16. FLEXERIL [Concomitant]
  17. SINGULAIR [Concomitant]
     Dosage: 10 MG, QHS
     Route: 048
  18. LOVENOX [Concomitant]
     Dosage: 40 MG, QD
     Route: 058
  19. AREDIA [Suspect]
     Indication: OSTEOPOROSIS
     Dosage: MONTHLY
     Dates: start: 20000417, end: 20060915
  20. AREDIA [Suspect]
     Indication: METASTASES TO BONE
  21. MECLIZINE [Concomitant]
     Dosage: 25 MG, TID
     Route: 048
  22. TAMOXIFEN CITRATE [Concomitant]
  23. XANAX [Concomitant]
  24. TYLOX [Concomitant]
  25. OXYCONTIN [Concomitant]
  26. HUMULIN R [Concomitant]
     Dosage: 15 U, QHS
     Route: 058
  27. RESTORIL [Concomitant]
     Dosage: 7.5 MG, DAILY
  28. NOLVADEX [Concomitant]
  29. AROMASIN [Concomitant]
     Indication: BREAST CANCER
  30. NPH INSULIN [Concomitant]
     Dosage: 20 U, QD
     Route: 058
  31. ZYPREXA [Concomitant]
  32. ZOLOFT [Concomitant]
  33. LOMOTIL [Concomitant]
  34. BEXTRA [Concomitant]
     Dosage: 10 MG, BID
     Route: 048
  35. DOCUSATE [Concomitant]
     Dosage: 100 MG, QD
     Route: 048
  36. NPH INSULIN [Concomitant]
     Dosage: 15 U, QHS
     Route: 058
  37. ZESTRIL [Concomitant]
     Dosage: 10 MG, QD
     Route: 048
  38. AREDIA [Suspect]
     Indication: OSTEITIS DEFORMANS
     Dosage: EVERY 3 MONLTHS
  39. MAVIK [Concomitant]
  40. INSULIN [Concomitant]
  41. LORTAB [Concomitant]
     Dosage: 10 MG, PRN
     Route: 048
  42. CIPRO [Concomitant]
     Dosage: 500 MG, BID
     Route: 048
  43. FOSAMAX [Suspect]
     Indication: OSTEOPOROSIS
  44. AMBIEN [Concomitant]
  45. AMARYL [Concomitant]
  46. MORPHINE [Concomitant]
     Dosage: 25 MG/ML, UNK
     Route: 037
  47. ZANTAC [Concomitant]
  48. POTASSIUM CHLORIDE [Concomitant]
     Dosage: UNK
  49. ABILIFY [Concomitant]
  50. FENTANYL [Concomitant]

REACTIONS (54)
  - ANXIETY [None]
  - ABDOMINAL PAIN [None]
  - OEDEMA PERIPHERAL [None]
  - ERYTHEMA [None]
  - LACERATION [None]
  - CONFUSIONAL STATE [None]
  - CONDITION AGGRAVATED [None]
  - ADRENAL ADENOMA [None]
  - RHINITIS ALLERGIC [None]
  - METASTASES TO SPINE [None]
  - OSTEONECROSIS OF JAW [None]
  - JAW DISORDER [None]
  - INJURY [None]
  - TOOTH LOSS [None]
  - OSTEOARTHRITIS [None]
  - NEPHROLITHIASIS [None]
  - FALL [None]
  - PERIPHERAL VASCULAR DISORDER [None]
  - ADRENAL MASS [None]
  - OSTEOMYELITIS [None]
  - CHRONIC SINUSITIS [None]
  - SKELETAL INJURY [None]
  - ANKLE FRACTURE [None]
  - DRUG DEPENDENCE [None]
  - BACK PAIN [None]
  - INFECTION [None]
  - DIZZINESS [None]
  - CATARACT [None]
  - ASTHENIA [None]
  - PAIN IN EXTREMITY [None]
  - DEPRESSION [None]
  - SKIN ULCER [None]
  - LACK OF SPONTANEOUS SPEECH [None]
  - MOOD ALTERED [None]
  - DYSTHYMIC DISORDER [None]
  - HALLUCINATION [None]
  - PAIN [None]
  - EMOTIONAL DISTRESS [None]
  - BONE SWELLING [None]
  - NECK PAIN [None]
  - CELLULITIS [None]
  - FIBULA FRACTURE [None]
  - MACULAR DEGENERATION [None]
  - MALAISE [None]
  - CYCLOTHYMIC DISORDER [None]
  - ANHEDONIA [None]
  - FOOT FRACTURE [None]
  - INSOMNIA [None]
  - KYPHOSCOLIOSIS [None]
  - CHOLELITHIASIS [None]
  - VERTIGO [None]
  - STASIS DERMATITIS [None]
  - INTERVERTEBRAL DISC PROTRUSION [None]
  - CONTUSION [None]
